FAERS Safety Report 23651788 (Version 1)
Quarter: 2024Q1

REPORT INFORMATION
  Report Type: Spontaneous
  Country: US (occurrence: US)
  Receive Date: 20240320
  Receipt Date: 20240320
  Transmission Date: 20240410
  Serious: Yes (Life-Threatening, Hospitalization, Other)
  Sender: FDA-Public Use
  Company Number: US-SUN PHARMACEUTICAL INDUSTRIES LTD-2024R1-436759

PATIENT
  Age: 58 Year
  Sex: Male

DRUGS (5)
  1. IPRATROPIUM [Suspect]
     Active Substance: IPRATROPIUM
     Indication: Asthma
     Dosage: UNK (NEBS Q 6HRS)
     Route: 065
  2. ALBUTEROL [Suspect]
     Active Substance: ALBUTEROL
     Indication: Asthma
     Dosage: UNK (CONTINOUS NEBS)
     Route: 065
  3. EPINEPHRINE [Suspect]
     Active Substance: EPINEPHRINE
     Indication: Asthma
     Dosage: UNK
     Route: 065
  4. METHYLPREDNISOLONE [Suspect]
     Active Substance: METHYLPREDNISOLONE
     Indication: Asthma
     Dosage: UNK
     Route: 042
  5. AMINOPHYLLINE [Suspect]
     Active Substance: AMINOPHYLLINE
     Indication: Asthma
     Dosage: UNK
     Route: 065

REACTIONS (2)
  - Therapy non-responder [Unknown]
  - Increased viscosity of upper respiratory secretion [Recovering/Resolving]
